FAERS Safety Report 5346015-0 (Version None)
Quarter: 2007Q2

REPORT INFORMATION
  Report Type: 
  Country: None (occurrence: None)
  Receive Date: 20070605
  Receipt Date: 20070530
  Transmission Date: 20071010
  Serious: Yes (Hospitalization, Other)
  Sender: FDA-Public Use
  Company Number: US-ELI_LILLY_AND_COMPANY-US200704005624

PATIENT
  Age: 66 Year
  Sex: Female
  Weight: 65.759 kg

DRUGS (4)
  1. XANAX [Concomitant]
     Indication: ANXIETY
     Dosage: 0.25 MG, EVERY 8 HRS
     Route: 048
  2. VICODIN ES [Concomitant]
     Dosage: UNK, AS NEEDED
  3. GEMZAR [Suspect]
     Indication: OVARIAN CANCER
     Dosage: 1400 MG, UNK
     Route: 042
  4. GEMZAR [Suspect]
     Dosage: 1800 MG, UNK
     Route: 042

REACTIONS (1)
  - ENTEROCOLITIS INFECTIOUS [None]
